FAERS Safety Report 21783135 (Version 2)
Quarter: 2023Q1

REPORT INFORMATION
  Report Type: Spontaneous
  Country: DK (occurrence: DK)
  Receive Date: 20221227
  Receipt Date: 20230103
  Transmission Date: 20230418
  Serious: Yes (Other)
  Sender: FDA-Public Use
  Company Number: DK-002147023-NVSC2022DK296838

PATIENT
  Age: 66 Year
  Sex: Female

DRUGS (1)
  1. PANTOPRAZOLE SODIUM [Suspect]
     Active Substance: PANTOPRAZOLE SODIUM
     Indication: Product used for unknown indication
     Dosage: 40 MG, QD (HAD TAKEN PRODUCT FOR MORE THAN 20 YEARS AND WAS STILL TAKING THE PRODUCT)
     Route: 065

REACTIONS (4)
  - Dependence [Unknown]
  - Haematochezia [Unknown]
  - Dizziness [Unknown]
  - Nausea [Unknown]
